FAERS Safety Report 4604186-5 (Version None)
Quarter: 2005Q1

REPORT INFORMATION
  Report Type: 
  Country: None (occurrence: None)
  Receive Date: 20050310
  Receipt Date: 20041007
  Transmission Date: 20050727
  Serious: Yes (Hospitalization)
  Sender: FDA-Public Use
  Company Number: PHNU2004DE03459

PATIENT
  Age: 66 Year
  Sex: Female

DRUGS (5)
  1. PROVAS COMP [Suspect]
     Indication: HYPERTENSION
     Dosage: 80 MG, QD
     Route: 048
     Dates: start: 20020301, end: 20040101
  2. PROVAS COMP [Suspect]
     Dosage: 80 MG, BID
     Route: 048
     Dates: start: 20040101
  3. MOXONIDINE [Concomitant]
     Route: 048
     Dates: start: 20020101, end: 20041105
  4. METOPROLOL TARTRATE [Concomitant]
     Route: 048
     Dates: start: 20000101, end: 20041105
  5. NITRENDIPINE [Concomitant]
     Route: 048
     Dates: start: 20020101, end: 20041105

REACTIONS (4)
  - ABDOMINAL PAIN UPPER [None]
  - COUGH [None]
  - INCREASED UPPER AIRWAY SECRETION [None]
  - UNEVALUABLE EVENT [None]
